FAERS Safety Report 25375277 (Version 1)
Quarter: 2025Q2

REPORT INFORMATION
  Report Type: Spontaneous
  Country: SE (occurrence: SE)
  Receive Date: 20250529
  Receipt Date: 20250529
  Transmission Date: 20250717
  Serious: Yes (Hospitalization, Other)
  Sender: MYLAN
  Company Number: SE-Accord-254634

PATIENT
  Age: 62 Year
  Sex: Male
  Weight: 125.7 kg

DRUGS (16)
  1. LENALIDOMIDE [Suspect]
     Active Substance: LENALIDOMIDE
     Indication: Follicular lymphoma stage III
     Dosage: 20 MILLIGRAM, QD, QD
     Dates: start: 20220104, end: 20220111
  2. LENALIDOMIDE [Suspect]
     Active Substance: LENALIDOMIDE
     Dosage: 20 MILLIGRAM, QD, QD
     Dates: start: 20211123, end: 20211213
  3. LENALIDOMIDE [Suspect]
     Active Substance: LENALIDOMIDE
  4. TRIMETHOPRIM [Suspect]
     Active Substance: TRIMETHOPRIM
     Indication: Product used for unknown indication
  5. RITUXIMAB [Suspect]
     Active Substance: RITUXIMAB
     Indication: Follicular lymphoma stage III
     Dates: start: 20211123, end: 20211123
  6. RITUXIMAB [Suspect]
     Active Substance: RITUXIMAB
  7. SULFAMETHOXAZOLE [Suspect]
     Active Substance: SULFAMETHOXAZOLE
     Indication: Product used for unknown indication
  8. EPCORITAMAB [Suspect]
     Active Substance: EPCORITAMAB
     Indication: Follicular lymphoma stage III
     Dosage: 48 MILLIGRAM, QW, FULL DOSE, WEEKLY
     Dates: start: 20211221, end: 20220111
  9. EPCORITAMAB [Suspect]
     Active Substance: EPCORITAMAB
     Dates: start: 20211207, end: 20211207
  10. EPCORITAMAB [Suspect]
     Active Substance: EPCORITAMAB
     Dates: start: 20211123, end: 20211123
  11. EPCORITAMAB [Suspect]
     Active Substance: EPCORITAMAB
     Dates: start: 20211214, end: 20211214
  12. ENALAPRIL [Concomitant]
     Active Substance: ENALAPRIL
  13. Aciklovir gea [Concomitant]
  14. SITAGLIPTIN PHOSPHATE [Concomitant]
     Active Substance: SITAGLIPTIN PHOSPHATE
  15. METFORMIN HYDROCHLORIDE [Concomitant]
     Active Substance: METFORMIN HYDROCHLORIDE
  16. SIMVASTATIN [Concomitant]
     Active Substance: SIMVASTATIN

REACTIONS (3)
  - Cytokine release syndrome [Recovered/Resolved]
  - Pneumocystis jirovecii infection [Recovering/Resolving]
  - Diarrhoea [Not Recovered/Not Resolved]

NARRATIVE: CASE EVENT DATE: 20220111
